FAERS Safety Report 4385503-0 (Version None)
Quarter: 2004Q2

REPORT INFORMATION
  Report Type: 
  Country: None (occurrence: None)
  Receive Date: 20040622
  Receipt Date: 20040604
  Transmission Date: 20050107
  Serious: Yes (Other)
  Sender: FDA-Public Use
  Company Number: 2004S1000039

PATIENT
  Age: 23 Year
  Sex: Female
  Weight: 47.6277 kg

DRUGS (2)
  1. SORIATANE [Suspect]
     Indication: PSORIASIS
     Dosage: 25 MG, ORAL, DAILY
     Route: 048
     Dates: start: 20030701, end: 20031201
  2. ADDERALL - THERAPY DATES UNKNOWN [Concomitant]

REACTIONS (9)
  - ABDOMINAL DISCOMFORT [None]
  - ABORTION SPONTANEOUS [None]
  - ATTENTION DEFICIT/HYPERACTIVITY DISORDER [None]
  - DRUG EXPOSURE DURING PREGNANCY [None]
  - HAEMORRHAGE [None]
  - PREGNANCY ON ORAL CONTRACEPTIVE [None]
  - PREGNANCY WITH CONTRACEPTIVE DEVICE [None]
  - SINUSITIS [None]
  - TREATMENT NONCOMPLIANCE [None]
